FAERS Safety Report 8692360 (Version 2)
Quarter: 2013Q2

REPORT INFORMATION
  Report Type: Spontaneous
  Country: IT (occurrence: IT)
  Receive Date: 20120730
  Receipt Date: 20130514
  Transmission Date: 20140414
  Serious: Yes (Other)
  Sender: FDA-Public Use
  Company Number: IT-PFIZER INC-2012180880

PATIENT
  Age: 64 Year
  Sex: Female

DRUGS (7)
  1. CAMPTO [Suspect]
     Indication: COLON CANCER
     Dosage: 310 MG, CYCLIC
     Route: 042
     Dates: start: 20120114, end: 20120724
  2. ERBITUX [Suspect]
     Indication: COLON CANCER
     Dosage: 680 MG, CYCLIC
     Route: 042
     Dates: start: 20120114, end: 20120724
  3. ANTRA [Concomitant]
     Dosage: UNK
  4. FEMARA [Concomitant]
  5. ENAPREN [Concomitant]
  6. NORVASC [Concomitant]
  7. EFEXOR [Concomitant]

REACTIONS (2)
  - Rash [Recovering/Resolving]
  - Diarrhoea [Recovering/Resolving]
